FAERS Safety Report 8872342 (Version 1)
Quarter: 2012Q4

REPORT INFORMATION
  Report Type: 
  Country: US (occurrence: US)
  Receive Date: 20121029
  Receipt Date: 20121029
  Transmission Date: 20130627
  Serious: Yes (Hospitalization)
  Sender: FDA-Public Use
  Company Number: US-B.I. PHARMACEUTICALS,INC./RIDGEFIELD-2012-BP-26470BP

PATIENT
  Age: 60 None
  Sex: Male
  Weight: 129 kg

DRUGS (4)
  1. SPIRIVA [Suspect]
     Indication: CHRONIC OBSTRUCTIVE PULMONARY DISEASE
     Dosage: 18 mcg
     Route: 055
     Dates: start: 2007
  2. SYMBICORT [Concomitant]
     Dosage: 9 mg
     Route: 055
     Dates: start: 2004
  3. ALBUTEROL [Concomitant]
     Indication: WHEEZING
     Route: 055
     Dates: start: 1995
  4. ATIVAN [Concomitant]
     Indication: ANXIETY
     Dosage: 8 mg
     Route: 048
     Dates: start: 1995

REACTIONS (5)
  - Pneumonia [Recovered/Resolved]
  - Sleep disorder [Recovered/Resolved]
  - Pulmonary function test decreased [Not Recovered/Not Resolved]
  - Asthenia [Recovered/Resolved]
  - Dyspnoea [Recovered/Resolved]
